FAERS Safety Report 18222458 (Version 1)
Quarter: 2020Q3

REPORT INFORMATION
  Report Type: Spontaneous
  Country: DE (occurrence: DE)
  Receive Date: 20200902
  Receipt Date: 20200902
  Transmission Date: 20201103
  Serious: Yes (Hospitalization, Other)
  Sender: FDA-Public Use
  Company Number: DE-NOVITIUMPHARMA-2020DENVP00029

PATIENT
  Age: 72 Year
  Sex: Female

DRUGS (2)
  1. ACETAZOLAMIDE. [Suspect]
     Active Substance: ACETAZOLAMIDE
     Indication: INTRAOCULAR PRESSURE TEST
  2. ACETAZOLAMIDE. [Suspect]
     Active Substance: ACETAZOLAMIDE

REACTIONS (8)
  - Headache [Recovering/Resolving]
  - Conjunctival hyperaemia [Recovering/Resolving]
  - Angle closure glaucoma [Recovering/Resolving]
  - Choroidal detachment [Recovering/Resolving]
  - Visual impairment [Recovering/Resolving]
  - Choroidal effusion [Recovering/Resolving]
  - Flat anterior chamber of eye [Recovering/Resolving]
  - Corneal oedema [Recovering/Resolving]
